FAERS Safety Report 15634461 (Version 2)
Quarter: 2018Q4

REPORT INFORMATION
  Report Type: Spontaneous
  Country: US (occurrence: US)
  Receive Date: 20181119
  Receipt Date: 20181129
  Transmission Date: 20190205
  Serious: Yes (Hospitalization)
  Sender: FDA-Public Use
  Company Number: US-FRESENIUS MEDICAL CARE RENAL THERAPIES GROUP-FMC-1811-001972

PATIENT
  Sex: Male
  Weight: 78 kg

DRUGS (1)
  1. DELFLEX [Suspect]
     Active Substance: CALCIUM CHLORIDE\DEXTROSE\MAGNESIUM CHLORIDE\SODIUM CHLORIDE\SODIUM LACTATE
     Indication: END STAGE RENAL DISEASE
     Dosage: FOUR FILLS OF 2500 ML FOR A TOTAL TREATMENT VOLUME OF 10000 ML
     Route: 033

REACTIONS (2)
  - Burning sensation [Recovered/Resolved]
  - Abdominal pain [Recovered/Resolved]
